FAERS Safety Report 9085639 (Version 1)
Quarter: 2013Q1

REPORT INFORMATION
  Report Type: Spontaneous
  Country: US (occurrence: US)
  Receive Date: 20130201
  Receipt Date: 20130201
  Transmission Date: 20140127
  Serious: No
  Sender: FDA-Public Use
  Company Number: US-PFIZER INC-2013031431

PATIENT
  Sex: Female

DRUGS (1)
  1. ADVIL PM [Suspect]
     Dosage: 3 TABLETS, UNK
     Route: 048
     Dates: start: 20130123

REACTIONS (2)
  - Wrong drug administered [Unknown]
  - Fatigue [Unknown]
